FAERS Safety Report 23271772 (Version 3)
Quarter: 2024Q3

REPORT INFORMATION
  Report Type: Spontaneous
  Country: IN (occurrence: IN)
  Receive Date: 20231207
  Receipt Date: 20240902
  Transmission Date: 20241016
  Serious: Yes (Death, Other)
  Sender: PFIZER
  Company Number: IN-PFIZER INC-PV202300192033

PATIENT
  Age: 51 Year
  Sex: Male
  Weight: 60 kg

DRUGS (2)
  1. CRIZOTINIB [Suspect]
     Active Substance: CRIZOTINIB
     Indication: Lung neoplasm malignant
     Dosage: 200 MG, 2X/DAY
     Route: 048
     Dates: start: 202209
  2. CRIZOTINIB [Suspect]
     Active Substance: CRIZOTINIB
     Dosage: 250 MG, 1X/DAY
     Route: 048
     Dates: start: 2024, end: 202407

REACTIONS (5)
  - Death [Fatal]
  - Blood pressure decreased [Unknown]
  - Mean arterial pressure decreased [Unknown]
  - Heart rate decreased [Unknown]
  - Respiratory rate increased [Unknown]

NARRATIVE: CASE EVENT DATE: 20231021
